FAERS Safety Report 5129898-9 (Version None)
Quarter: 2006Q4

REPORT INFORMATION
  Report Type: 
  Country: None (occurrence: None)
  Receive Date: 20061012
  Receipt Date: 20061002
  Transmission Date: 20070319
  Serious: No
  Sender: FDA-Public Use
  Company Number: 06H-028-0310550-00

PATIENT
  Age: 8 Year
  Sex: Male

DRUGS (8)
  1. VANCOMYCIN HYDROCHLORIDE [Suspect]
     Indication: SHUNT INFECTION
     Dosage: 400 MG, 6 HR, INTRAVENOUS
     Route: 042
  2. CLOXACILLIN BENZATHINE [Concomitant]
  3. FENTANYL [Concomitant]
  4. PROPOFOL [Concomitant]
  5. ROCURONIUM (ROCURONIUM) [Concomitant]
  6. ISOFLURANE [Concomitant]
  7. DIMENHYDRINATE [Concomitant]
  8. KETOROLAC [Concomitant]

REACTIONS (5)
  - ANTIBIOTIC LEVEL ABOVE THERAPEUTIC [None]
  - DRUG TOXICITY [None]
  - HAEMODIALYSIS [None]
  - RENAL FAILURE ACUTE [None]
  - RENAL TUBULAR NECROSIS [None]
